FAERS Safety Report 6551930-6 (Version None)
Quarter: 2010Q1

REPORT INFORMATION
  Report Type: 
  Country: None (occurrence: None)
  Receive Date: 20100120
  Receipt Date: 20100107
  Transmission Date: 20100710
  Serious: Yes (Other)
  Sender: FDA-Public Use
  Company Number: CAP10000027

PATIENT
  Age: 53 Year
  Sex: Female

DRUGS (2)
  1. ACTONEL [Suspect]
     Dosage: 150 MG, 1 ONLY;
  2. VAGIFEM [Concomitant]

REACTIONS (4)
  - DIARRHOEA [None]
  - NAUSEA [None]
  - VERTIGO [None]
  - VOMITING [None]
